FAERS Safety Report 12395876 (Version 1)
Quarter: 2016Q2

REPORT INFORMATION
  Report Type: Spontaneous
  Country: CA (occurrence: CA)
  Receive Date: 20160523
  Receipt Date: 20160523
  Transmission Date: 20160815
  Serious: Yes (Death, Other)
  Sender: FDA-Public Use
  Company Number: CA-ROXANE LABORATORIES, INC.-2016-RO-00915RO

PATIENT
  Age: 18 Day
  Sex: Male
  Weight: 2.34 kg

DRUGS (4)
  1. DOLOPHINE [Suspect]
     Active Substance: METHADONE HYDROCHLORIDE
     Indication: FOETAL EXPOSURE DURING PREGNANCY
     Route: 064
  2. DOLOPHINE [Suspect]
     Active Substance: METHADONE HYDROCHLORIDE
     Indication: EXPOSURE DURING BREAST FEEDING
     Route: 063
  3. COCAINE [Suspect]
     Active Substance: COCAINE
     Indication: FOETAL EXPOSURE DURING PREGNANCY
     Route: 064
  4. COCAINE [Suspect]
     Active Substance: COCAINE
     Indication: EXPOSURE DURING BREAST FEEDING
     Route: 063

REACTIONS (4)
  - Drug withdrawal syndrome neonatal [Unknown]
  - Death [Fatal]
  - Neonatal respiratory distress syndrome [Unknown]
  - Premature baby [Unknown]
